FAERS Safety Report 21003628 (Version 3)
Quarter: 2022Q4

REPORT INFORMATION
  Report Type: Spontaneous
  Country: US (occurrence: US)
  Receive Date: 20220624
  Receipt Date: 20221227
  Transmission Date: 20230113
  Serious: Yes (Hospitalization, Other)
  Sender: FDA-Public Use
  Company Number: US-PFIZER INC-PV202200008000

PATIENT
  Age: 78 Year
  Sex: Female

DRUGS (1)
  1. XELJANZ XR [Suspect]
     Active Substance: TOFACITINIB CITRATE
     Dosage: UNK

REACTIONS (9)
  - COVID-19 [Unknown]
  - Myocardial infarction [Unknown]
  - Renal impairment [Unknown]
  - Cardiac dysfunction [Unknown]
  - Restless legs syndrome [Unknown]
  - Condition aggravated [Unknown]
  - Hepatic enzyme abnormal [Unknown]
  - Renal function test abnormal [Unknown]
  - Cough [Unknown]

NARRATIVE: CASE EVENT DATE: 20220101
